FAERS Safety Report 21990135 (Version 1)
Quarter: 2023Q1

REPORT INFORMATION
  Report Type: Spontaneous
  Country: US (occurrence: None)
  Receive Date: 20230213
  Receipt Date: 20230213
  Transmission Date: 20230418
  Serious: No
  Sender: FDA-Public Use
  Company Number: None

PATIENT
  Age: 60 Year
  Sex: Female

DRUGS (2)
  1. CIMZIA [Suspect]
     Active Substance: CERTOLIZUMAB PEGOL
     Indication: Rheumatoid arthritis
     Dosage: OTHER QUANTITY : 200MG (2 SYRINGE);?FREQUENCY : AS DIRECTED;?
     Route: 058
     Dates: start: 202108
  2. RASUVO [Suspect]
     Active Substance: METHOTREXATE SODIUM
     Indication: Rheumatoid arthritis
     Dosage: OTHER QUANTITY : 20MG (0.4ML);?FREQUENCY : AS DIRECTED;?
     Route: 058
     Dates: start: 202108

REACTIONS (1)
  - Tuberculosis [None]
